FAERS Safety Report 19405247 (Version 2)
Quarter: 2021Q2

REPORT INFORMATION
  Report Type: Spontaneous
  Country: IT (occurrence: IT)
  Receive Date: 20210611
  Receipt Date: 20210623
  Transmission Date: 20210717
  Serious: Yes (Other)
  Sender: FDA-Public Use
  Company Number: IT-COLLEGIUM PHARMACEUTICAL, INC.-2021CGM00693

PATIENT
  Age: 46 Year
  Sex: Female

DRUGS (8)
  1. EZEQUA [Concomitant]
     Active Substance: DULOXETINE HYDROCHLORIDE
     Dosage: UNK
  2. EZEQUA [Concomitant]
     Active Substance: DULOXETINE HYDROCHLORIDE
     Dosage: UNK
  3. TAPENTADOL [Suspect]
     Active Substance: TAPENTADOL
     Indication: ABDOMINAL PAIN UPPER
     Dosage: 150 MG, 1X/DAY
     Dates: start: 2020, end: 2020
  4. TAPENTADOL [Suspect]
     Active Substance: TAPENTADOL
     Dosage: 100 MG, 2X/DAY
     Dates: end: 2020
  5. ABSTRAL [Concomitant]
     Active Substance: FENTANYL CITRATE
     Dosage: UNK
  6. TAPENTADOL [Suspect]
     Active Substance: TAPENTADOL
     Indication: ABDOMINAL PAIN
     Dosage: 50 MG, 2X/DAY
     Route: 048
  7. SELG [Concomitant]
  8. MOVENTIG [Concomitant]
     Active Substance: NALOXEGOL OXALATE

REACTIONS (4)
  - Norepinephrine increased [Unknown]
  - Flushing [Unknown]
  - Constipation [Unknown]
  - Hypertensive crisis [Unknown]
